FAERS Safety Report 6431153-1 (Version None)
Quarter: 2009Q4

REPORT INFORMATION
  Report Type: 
  Country: None (occurrence: None)
  Receive Date: 20091105
  Receipt Date: 20091105
  Transmission Date: 20100525
  Serious: Yes (Death)
  Sender: FDA-Public Use
  Company Number: None

PATIENT
  Sex: Female
  Weight: 51 kg

DRUGS (3)
  1. OXALIPLATIN [Suspect]
     Indication: GASTRIC CANCER
     Dosage: 130 MG/M2  D1 IV
     Route: 042
     Dates: start: 20090708, end: 20091021
  2. CETUXIMAB [Suspect]
     Indication: GASTRIC CANCER
     Dosage: 250 MG/M2 D1,8,15 IV
     Route: 042
     Dates: start: 20090708, end: 20091021
  3. XELODA [Suspect]
     Indication: GASTRIC CANCER
     Dosage: 850 MG/M2 D1-14 BID PO
     Route: 048
     Dates: start: 20090708, end: 20091021

REACTIONS (5)
  - BLOOD PRESSURE DECREASED [None]
  - DYSPNOEA [None]
  - LUNG INFECTION [None]
  - PULMONARY OEDEMA [None]
  - SEPSIS [None]
